FAERS Safety Report 5788358-2 (Version None)
Quarter: 2008Q2

REPORT INFORMATION
  Report Type: 
  Country: None (occurrence: None)
  Receive Date: 20080625
  Receipt Date: 20080613
  Transmission Date: 20081010
  Serious: Yes (Other)
  Sender: FDA-Public Use
  Company Number: US-PFIZER INC-2008050514

PATIENT
  Sex: Female

DRUGS (1)
  1. DETROL LA [Suspect]

REACTIONS (4)
  - BLADDER PROLAPSE [None]
  - DRUG INEFFECTIVE [None]
  - DRY MOUTH [None]
  - NOCTURIA [None]
